FAERS Safety Report 23994814 (Version 1)
Quarter: 2024Q2

REPORT INFORMATION
  Report Type: Spontaneous
  Country: CA (occurrence: CA)
  Receive Date: 20240620
  Receipt Date: 20240620
  Transmission Date: 20240716
  Serious: Yes (Other)
  Sender: FDA-Public Use
  Company Number: CA-PFIZER INC-PV202400080280

PATIENT

DRUGS (2)
  1. LORLATINIB [Suspect]
     Active Substance: LORLATINIB
     Dosage: 100 MG, 1X/DAY
  2. LORLATINIB [Suspect]
     Active Substance: LORLATINIB
     Dosage: UNK (RESTARTED AT A LOWER DOSE)

REACTIONS (2)
  - Hallucination [Not Recovered/Not Resolved]
  - Hyperlipidaemia [Not Recovered/Not Resolved]
